FAERS Safety Report 23685343 (Version 1)
Quarter: 2024Q1

REPORT INFORMATION
  Report Type: Spontaneous
  Country: US (occurrence: None)
  Receive Date: 20240329
  Receipt Date: 20240329
  Transmission Date: 20240410
  Serious: No
  Sender: FDA-Public Use
  Company Number: 2024A063616

PATIENT
  Age: 27076 Day
  Sex: Male

DRUGS (2)
  1. BYDUREON BCISE [Suspect]
     Active Substance: EXENATIDE
  2. BYDUREON [Suspect]
     Active Substance: EXENATIDE

REACTIONS (6)
  - Injury associated with device [Unknown]
  - Inappropriate schedule of product administration [Unknown]
  - Incorrect dose administered by device [Unknown]
  - Drug dose omission by device [Unknown]
  - Overdose [Unknown]
  - Device defective [Unknown]

NARRATIVE: CASE EVENT DATE: 20240311
